FAERS Safety Report 6966910-6 (Version None)
Quarter: 2010Q3

REPORT INFORMATION
  Report Type: 
  Country: None (occurrence: None)
  Receive Date: 20100906
  Receipt Date: 20100901
  Transmission Date: 20110219
  Serious: Yes (Death)
  Sender: FDA-Public Use
  Company Number: PHHY2010JP46403

PATIENT
  Age: 67 Year
  Sex: Male

DRUGS (3)
  1. VOLTAREN [Suspect]
     Indication: PYREXIA
     Dosage: 50 MG PER DAY
     Route: 048
     Dates: start: 20090430, end: 20090504
  2. PEGASYS [Suspect]
     Indication: HEPATITIS C
     Dosage: 180 UG PER DAY
     Dates: start: 20090423, end: 20090430
  3. COPEGUS [Suspect]
     Indication: HEPATITIS C
     Dosage: 600 MG PER DAY
     Route: 048
     Dates: start: 20090423, end: 20090504

REACTIONS (1)
  - INTERSTITIAL LUNG DISEASE [None]
